FAERS Safety Report 18186794 (Version 1)
Quarter: 2020Q3

REPORT INFORMATION
  Report Type: Spontaneous
  Country: US (occurrence: US)
  Receive Date: 20200824
  Receipt Date: 20200824
  Transmission Date: 20201103
  Serious: No
  Sender: FDA-Public Use
  Company Number: US-PFIZER INC-2020325892

PATIENT
  Age: 37 Year
  Sex: Female
  Weight: 79.38 kg

DRUGS (3)
  1. PRAZOSIN HCL [Suspect]
     Active Substance: PRAZOSIN HYDROCHLORIDE
     Dosage: 1 DF, 1X/DAY (1 MG CAPSULE ONCE A DAY AT NIGHT)
     Route: 048
  2. PRAZOSIN HCL [Suspect]
     Active Substance: PRAZOSIN HYDROCHLORIDE
     Dosage: 1 DF, 1X/DAY (1MG ONCE A DAY)
     Route: 048
  3. PRAZOSIN HCL [Suspect]
     Active Substance: PRAZOSIN HYDROCHLORIDE
     Dosage: 2 DF, 1X/DAY (1MG TWO CAPSULES ONCE A DAY)
     Route: 048
     Dates: start: 202008

REACTIONS (1)
  - Diarrhoea [Unknown]

NARRATIVE: CASE EVENT DATE: 2020
